FAERS Safety Report 10380466 (Version 1)
Quarter: 2014Q3

REPORT INFORMATION
  Report Type: Spontaneous
  Country: US (occurrence: None)
  Receive Date: 20140812
  Receipt Date: 20140812
  Transmission Date: 20150326
  Serious: Yes (Other)
  Sender: FDA-Public Use
  Company Number: None

PATIENT
  Age: 39 Year
  Sex: Female
  Weight: 51.71 kg

DRUGS (2)
  1. SPIRONOLACTONE. [Suspect]
     Active Substance: SPIRONOLACTONE
     Indication: POLYCYSTIC OVARIES
     Dosage: 2 PILLS DAILY  TWICE DAILY TAKEN BY MOUTH
     Route: 048
     Dates: start: 20140711, end: 20140801
  2. SPIRONOLACTONE. [Suspect]
     Active Substance: SPIRONOLACTONE
     Indication: ALOPECIA
     Dosage: 2 PILLS DAILY  TWICE DAILY TAKEN BY MOUTH
     Route: 048
     Dates: start: 20140711, end: 20140801

REACTIONS (8)
  - Fatigue [None]
  - Dyspnoea [None]
  - Thirst [None]
  - Muscle spasms [None]
  - Muscular weakness [None]
  - Urine output increased [None]
  - Exercise tolerance decreased [None]
  - Feeling abnormal [None]

NARRATIVE: CASE EVENT DATE: 20140718
